FAERS Safety Report 5164355-5 (Version None)
Quarter: 2006Q4

REPORT INFORMATION
  Report Type: 
  Country: None (occurrence: None)
  Receive Date: 20061127
  Receipt Date: 20061127
  Transmission Date: 20070319
  Serious: Yes (Hospitalization)
  Sender: FDA-Public Use
  Company Number: None

PATIENT
  Age: 74 Year
  Sex: Female

DRUGS (10)
  1. CELEBREX [Suspect]
     Indication: PAIN MANAGEMENT
     Dosage: 200 MG DAILY PO
     Route: 048
     Dates: start: 20050801, end: 20060802
  2. COUMADIN [Concomitant]
  3. ASPIRIN [Concomitant]
  4. PLAVIX [Concomitant]
  5. ADVAIR DISKUS 100/50 [Concomitant]
  6. PREVACID [Concomitant]
  7. SPIRIVA [Concomitant]
  8. PRAVACHOL [Concomitant]
  9. TOPROL-XL [Concomitant]
  10. PREDNISONE TAB [Concomitant]

REACTIONS (3)
  - ACUTE MYOCARDIAL INFARCTION [None]
  - MYOCARDIAL ISCHAEMIA [None]
  - POST PROCEDURAL COMPLICATION [None]
